FAERS Safety Report 26062405 (Version 1)
Quarter: 2025Q4

REPORT INFORMATION
  Report Type: Spontaneous
  Country: GB (occurrence: GB)
  Receive Date: 20251119
  Receipt Date: 20251119
  Transmission Date: 20260118
  Serious: Yes (Life-Threatening, Hospitalization, Disabling, Other)
  Sender: TEVA
  Company Number: GB-MHRA-WEBRADR-202511100112229940-NSVHT

PATIENT
  Sex: Male
  Weight: 91 kg

DRUGS (3)
  1. DIAZEPAM [Suspect]
     Active Substance: DIAZEPAM
     Indication: Agitation
     Route: 048
     Dates: start: 20250902
  2. BISOPROLOL [Concomitant]
     Active Substance: BISOPROLOL
     Indication: Tachycardia
  3. EPILIM [Suspect]
     Active Substance: VALPROATE SODIUM
     Indication: Affective disorder
     Dosage: GENERIC
     Route: 048
     Dates: start: 20250902, end: 20251110

REACTIONS (8)
  - Drug hypersensitivity [Not Recovered/Not Resolved]
  - Product prescribing issue [Unknown]
  - Allergic reaction to excipient [Unknown]
  - Contraindicated product prescribed [Unknown]
  - Seizure [Unknown]
  - Headache [Unknown]
  - Aggression [Unknown]
  - Epistaxis [Unknown]

NARRATIVE: CASE EVENT DATE: 20250902
